FAERS Safety Report 5610779-9 (Version None)
Quarter: 2008Q1

REPORT INFORMATION
  Report Type: 
  Country: None (occurrence: None)
  Receive Date: 20080201
  Receipt Date: 20080128
  Transmission Date: 20080703
  Serious: Yes (Hospitalization, Other)
  Sender: FDA-Public Use
  Company Number: DE-BRISTOL-MYERS SQUIBB COMPANY-14008460

PATIENT
  Age: 49 Year
  Sex: Male
  Weight: 77 kg

DRUGS (4)
  1. ORENCIA [Suspect]
     Indication: RHEUMATOID ARTHRITIS
     Dosage: 4TH INFUSION WAS ON 17-NOV-2007.
     Route: 042
     Dates: start: 20070707, end: 20071201
  2. PREDNISOLONE [Concomitant]
  3. BONIVA [Concomitant]
  4. HYDROMORPHONE HCL [Concomitant]

REACTIONS (5)
  - CHEST DISCOMFORT [None]
  - DYSPNOEA [None]
  - MYOCARDITIS [None]
  - NAUSEA [None]
  - RESTLESSNESS [None]
